FAERS Safety Report 5906788-2 (Version None)
Quarter: 2008Q3

REPORT INFORMATION
  Report Type: 
  Country: None (occurrence: None)
  Receive Date: 20080929
  Receipt Date: 20080919
  Transmission Date: 20090109
  Serious: Yes (Other)
  Sender: FDA-Public Use
  Company Number: 20267

PATIENT
  Age: 29 Year
  Sex: Female

DRUGS (10)
  1. FLUDARABINE PHOSPHATE [Suspect]
     Indication: BONE MARROW CONDITIONING REGIMEN
     Dosage: 30 MG/M2 DAILY
  2. CAMPATH [Suspect]
     Indication: BONE MARROW CONDITIONING REGIMEN
     Dosage: 10 MG DAILY IV
     Route: 042
  3. CAMPATH [Suspect]
     Indication: BONE MARROW CONDITIONING REGIMEN
     Dosage: 15 MG DAILY IV
     Route: 042
  4. CAMPATH [Suspect]
     Indication: BONE MARROW CONDITIONING REGIMEN
     Dosage: 20 MG DAILY IV
     Route: 042
  5. MELPHALAN [Suspect]
     Indication: BONE MARROW CONDITIONING REGIMEN
     Dosage: 140 MG/KG DAILY
  6. POLYGAM [Concomitant]
  7. CYCLOSPORINE [Concomitant]
  8. NEUPOGEN [Concomitant]
  9. PENTAMIDINE [Concomitant]
  10. METHOTREXATE [Concomitant]

REACTIONS (1)
  - RENAL FAILURE [None]
